FAERS Safety Report 23457520 (Version 2)
Quarter: 2025Q1

REPORT INFORMATION
  Report Type: Spontaneous
  Country: NZ (occurrence: NZ)
  Receive Date: 20240130
  Receipt Date: 20250321
  Transmission Date: 20250409
  Serious: Yes (Hospitalization)
  Sender: TEVA
  Company Number: NZ-TEVA-VS-3140107

PATIENT
  Age: 30 Year
  Sex: Female

DRUGS (10)
  1. AMITRIPTYLINE [Suspect]
     Active Substance: AMITRIPTYLINE
     Indication: Nausea
     Route: 065
  2. CYCLIZINE [Suspect]
     Active Substance: CYCLIZINE
     Indication: Nausea
     Route: 065
  3. NORTRIPTYLINE [Suspect]
     Active Substance: NORTRIPTYLINE
     Indication: Nausea
     Route: 065
  4. MIRTAZAPINE [Suspect]
     Active Substance: MIRTAZAPINE
     Indication: Nausea
     Route: 065
  5. PRUCALOPRIDE [Suspect]
     Active Substance: PRUCALOPRIDE
     Indication: Nausea
     Route: 065
  6. ERYTHROMYCIN [Suspect]
     Active Substance: ERYTHROMYCIN
     Indication: Nausea
     Route: 065
  7. DOMPERIDONE [Suspect]
     Active Substance: DOMPERIDONE
     Indication: Nausea
     Route: 065
  8. GABAPENTIN [Suspect]
     Active Substance: GABAPENTIN
     Indication: Nausea
     Route: 065
  9. BOTOX [Suspect]
     Active Substance: ONABOTULINUMTOXINA
     Indication: Nausea
     Route: 065
  10. VENLAFAXINE [Suspect]
     Active Substance: VENLAFAXINE HYDROCHLORIDE
     Indication: Nausea
     Route: 065

REACTIONS (1)
  - Drug ineffective [Unknown]
